FAERS Safety Report 6190586-1 (Version None)
Quarter: 2009Q2

REPORT INFORMATION
  Report Type: 
  Country: None (occurrence: None)
  Receive Date: 20090514
  Receipt Date: 20090129
  Transmission Date: 20091009
  Serious: No
  Sender: FDA-Public Use
  Company Number: US-BRISTOL-MYERS SQUIBB COMPANY-14488530

PATIENT
  Age: 60 Year
  Sex: Female

DRUGS (2)
  1. IXEMPRA KIT [Suspect]
     Indication: BREAST CANCER METASTATIC
     Route: 042
     Dates: start: 20081230
  2. NEULASTA [Concomitant]
     Dates: start: 20081231

REACTIONS (1)
  - FATIGUE [None]
